FAERS Safety Report 8808809 (Version 1)
Quarter: 2012Q4

REPORT INFORMATION
  Report Type: 
  Country: HU (occurrence: HU)
  Receive Date: 20120926
  Receipt Date: 20120926
  Transmission Date: 20130627
  Serious: Yes (Other)
  Sender: FDA-Public Use
  Company Number: HU-PFIZER INC-2012234267

PATIENT
  Age: 60 Year
  Sex: Female
  Weight: 69 kg

DRUGS (8)
  1. XALATAN [Suspect]
     Indication: GLAUCOMA
     Dosage: 1x1 drop/day
     Dates: start: 2010
  2. LAVESTRA [Concomitant]
     Dosage: UNK
  3. DOXILEK [Concomitant]
     Dosage: UNK
  4. FLUVASTATIN [Concomitant]
     Dosage: UNK
  5. LIPIDIL [Concomitant]
     Dosage: UNK
  6. COMBIGAN [Concomitant]
     Dosage: UNK
  7. AZOPT [Concomitant]
     Dosage: UNK
  8. PANANGIN [Concomitant]
     Dosage: UNK

REACTIONS (3)
  - Visual impairment [Not Recovered/Not Resolved]
  - Ocular hyperaemia [Not Recovered/Not Resolved]
  - Drug ineffective [Not Recovered/Not Resolved]
